FAERS Safety Report 5529616-6 (Version None)
Quarter: 2007Q4

REPORT INFORMATION
  Report Type: 
  Country: None (occurrence: None)
  Receive Date: 20071129
  Receipt Date: 20071117
  Transmission Date: 20080405
  Serious: No
  Sender: FDA-Public Use
  Company Number: US-PFIZER INC-2007075206

PATIENT
  Sex: Female
  Weight: 54.4 kg

DRUGS (3)
  1. CHANTIX [Suspect]
     Indication: SMOKING CESSATION THERAPY
     Route: 048
  2. OXYCODONE HYDROCHLORIDE W/PARACETAMOL [Concomitant]
  3. CITALOPRAM [Concomitant]

REACTIONS (5)
  - FATIGUE [None]
  - MEDICATION ERROR [None]
  - MOBILITY DECREASED [None]
  - SOMNOLENCE [None]
  - WITHDRAWAL SYNDROME [None]
